FAERS Safety Report 13911970 (Version 1)
Quarter: 2017Q3

REPORT INFORMATION
  Report Type: Spontaneous
  Country: US (occurrence: US)
  Receive Date: 20170828
  Receipt Date: 20170828
  Transmission Date: 20171127
  Serious: No
  Sender: FDA-Public Use
  Company Number: US-ROCHE-GNE319850

PATIENT
  Age: 21 Year
  Sex: Female

DRUGS (2)
  1. MEDICATION (UNK INGREDIENT) [Concomitant]
     Active Substance: UNSPECIFIED INGREDIENT
     Indication: RENAL TRANSPLANT
  2. NUTROPIN [Suspect]
     Active Substance: SOMATROPIN
     Indication: PRODUCT USED FOR UNKNOWN INDICATION
     Dosage: 2.2 MG, UNK
     Route: 065

REACTIONS (3)
  - Headache [Unknown]
  - Vision blurred [None]
  - Nausea [None]

NARRATIVE: CASE EVENT DATE: 20110530
